FAERS Safety Report 15895528 (Version 1)
Quarter: 2019Q1

REPORT INFORMATION
  Report Type: Spontaneous
  Country: FR (occurrence: FR)
  Receive Date: 20190131
  Receipt Date: 20190131
  Transmission Date: 20190417
  Serious: Yes (Hospitalization)
  Sender: FDA-Public Use
  Company Number: FR-PFIZER INC-2019034993

PATIENT
  Age: 60 Year
  Sex: Male

DRUGS (1)
  1. DALACINE [Suspect]
     Active Substance: CLINDAMYCIN
     Dosage: UNK
     Route: 048
     Dates: start: 20181013, end: 20181016

REACTIONS (2)
  - Henoch-Schonlein purpura [Recovered/Resolved]
  - Hypersensitivity vasculitis [Recovered/Resolved]

NARRATIVE: CASE EVENT DATE: 20181015
